FAERS Safety Report 9402656 (Version 2)
Quarter: 2016Q4

REPORT INFORMATION
  Report Type: Report from Study
  Country: US (occurrence: US)
  Receive Date: 20130716
  Receipt Date: 20161108
  Transmission Date: 20170207
  Serious: Yes (Other)
  Sender: FDA-Public Use
  Company Number: US-ROCHE-1248828

PATIENT
  Sex: Male

DRUGS (3)
  1. LEUPROLIDE [Suspect]
     Active Substance: LEUPROLIDE
     Indication: SARCOPENIA
     Route: 030
  2. TESTOSTERONE TRANSDERMAL [Suspect]
     Active Substance: TESTOSTERONE
     Indication: SARCOPENIA
     Dosage: 5 G OR 10 G
     Route: 062
  3. SOMATROPIN [Suspect]
     Active Substance: SOMATROPIN
     Indication: SARCOPENIA
     Dosage: 3 TO 5 MCG.
     Route: 058

REACTIONS (3)
  - Blood pressure systolic increased [Unknown]
  - Insulin resistance [Unknown]
  - Protein total abnormal [Unknown]
